FAERS Safety Report 6241144-1 (Version None)
Quarter: 2009Q2

REPORT INFORMATION
  Report Type: 
  Country: None (occurrence: None)
  Receive Date: 20090623
  Receipt Date: 20090608
  Transmission Date: 20091009
  Serious: Yes (Other)
  Sender: FDA-Public Use
  Company Number: FR-GENENTECH-285145

PATIENT
  Age: 27 Year
  Sex: Female

DRUGS (2)
  1. RITUXIMAB [Suspect]
     Indication: LUPUS NEPHRITIS
     Dosage: 375 MG/M2, 1/WEEK
     Route: 065
  2. CORTICOSTEROIDS (UNK INGREDIENTS) [Concomitant]
     Indication: DRUG USE FOR UNKNOWN INDICATION

REACTIONS (1)
  - REVERSIBLE POSTERIOR LEUKOENCEPHALOPATHY SYNDROME [None]
